FAERS Safety Report 7912127-8 (Version None)
Quarter: 2011Q4

REPORT INFORMATION
  Report Type: 
  Country: None (occurrence: None)
  Receive Date: 20111114
  Receipt Date: 20111107
  Transmission Date: 20120403
  Serious: Yes (Death, Other)
  Sender: FDA-Public Use
  Company Number: IL-SANOFI-AVENTIS-2011SA074150

PATIENT
  Age: 53 Year
  Sex: Female

DRUGS (7)
  1. DOCETAXEL [Suspect]
     Route: 065
  2. LETROZOLE [Concomitant]
  3. CAPECITABINE [Suspect]
     Route: 065
  4. FULVESTRANT [Concomitant]
  5. PACLITAXEL [Suspect]
     Route: 065
  6. TAMOXIFEN CITRATE [Suspect]
     Route: 065
  7. LETROZOLE [Suspect]
     Route: 065

REACTIONS (9)
  - ASPARTATE AMINOTRANSFERASE INCREASED [None]
  - HEPATIC FAILURE [None]
  - BLOOD BILIRUBIN INCREASED [None]
  - PORTAL HYPERTENSION [None]
  - BLOOD ALKALINE PHOSPHATASE INCREASED [None]
  - ASCITES [None]
  - GAMMA-GLUTAMYLTRANSFERASE INCREASED [None]
  - HEPATIC CIRRHOSIS [None]
  - ALANINE AMINOTRANSFERASE INCREASED [None]
